FAERS Safety Report 8427850-9 (Version None)
Quarter: 2012Q2

REPORT INFORMATION
  Report Type: 
  Country: None (occurrence: None)
  Receive Date: 20120611
  Receipt Date: 20120531
  Transmission Date: 20120825
  Serious: No
  Sender: FDA-Public Use
  Company Number: US-ASTRAZENECA-2012SE19196

PATIENT
  Age: 68 Year
  Sex: Male

DRUGS (11)
  1. DIGETEK [Concomitant]
     Route: 048
     Dates: start: 20080602
  2. AMOXIL [Concomitant]
     Route: 048
     Dates: start: 20080812, end: 20110822
  3. TOPROL-XL [Suspect]
     Indication: BLOOD PRESSURE ABNORMAL
     Route: 048
     Dates: start: 19940101
  4. DIAZEPAM [Concomitant]
     Route: 048
     Dates: start: 20061020
  5. PRINIVIL [Concomitant]
     Route: 048
     Dates: start: 20071226
  6. LISINOPRIL [Suspect]
     Route: 048
     Dates: start: 20061120
  7. COUMADIN [Concomitant]
     Route: 048
     Dates: start: 20071226
  8. TERAZOSIN HCL [Concomitant]
     Route: 048
     Dates: start: 20110711
  9. CRESTOR [Suspect]
     Route: 048
  10. ZETIA [Concomitant]
     Route: 048
     Dates: start: 20071226
  11. DIGITOXIN TAB [Concomitant]
     Route: 048
     Dates: start: 20110510

REACTIONS (8)
  - GASTROENTERITIS VIRAL [None]
  - PROSTATITIS [None]
  - BACK PAIN [None]
  - TYPE V HYPERLIPIDAEMIA [None]
  - ACUTE SINUSITIS [None]
  - ROTATOR CUFF SYNDROME [None]
  - NEPHROLITHIASIS [None]
  - COUGH [None]
